FAERS Safety Report 12916516 (Version 1)
Quarter: 2016Q4

REPORT INFORMATION
  Report Type: Spontaneous
  Country: GB (occurrence: GB)
  Receive Date: 20161107
  Receipt Date: 20161107
  Transmission Date: 20170207
  Serious: Yes (Death, Hospitalization)
  Sender: FDA-Public Use
  Company Number: GB-CONCORDIA PHARMACEUTICALS INC.-GSH201611-005589

PATIENT
  Age: 70 Year
  Sex: Female

DRUGS (2)
  1. DIGOXIN. [Suspect]
     Active Substance: DIGOXIN
     Indication: MYOCARDIAL ISCHAEMIA
     Route: 065
  2. WARFARIN [Suspect]
     Active Substance: WARFARIN
     Indication: ATRIAL FIBRILLATION
     Route: 065

REACTIONS (5)
  - International normalised ratio increased [Unknown]
  - Multiple organ dysfunction syndrome [Fatal]
  - Retroperitoneal haematoma [Unknown]
  - Circulatory collapse [Unknown]
  - Haemoglobin decreased [Unknown]
